FAERS Safety Report 12517963 (Version 1)
Quarter: 2016Q2

REPORT INFORMATION
  Report Type: Spontaneous
  Country: US (occurrence: US)
  Receive Date: 20160630
  Receipt Date: 20160630
  Transmission Date: 20160815
  Serious: Yes (Other)
  Sender: FDA-Public Use
  Company Number: PHEH2016US015489

PATIENT
  Sex: Female

DRUGS (3)
  1. FAMVIR [Suspect]
     Active Substance: FAMCICLOVIR
     Dosage: 250 MG, UNK
     Route: 065
  2. FAMVIR [Suspect]
     Active Substance: FAMCICLOVIR
     Dosage: 500 MG, UNK (FROM APR TO MAY)
     Route: 065
  3. FAMVIR [Suspect]
     Active Substance: FAMCICLOVIR
     Indication: PRODUCT USED FOR UNKNOWN INDICATION
     Dosage: 500 MG, UNK
     Route: 065

REACTIONS (14)
  - Fatigue [Unknown]
  - Non-consummation [Unknown]
  - Coeliac disease [Unknown]
  - Neuralgia [Unknown]
  - Somnolence [Unknown]
  - Genital herpes [Unknown]
  - Constipation [Unknown]
  - Dermatitis [Unknown]
  - Wrong technique in product usage process [Unknown]
  - Renal impairment [Unknown]
  - Cardiac failure congestive [Unknown]
  - Drug ineffective [Unknown]
  - Pollakiuria [Unknown]
  - Cardiomegaly [Unknown]
